FAERS Safety Report 5877183-X (Version None)
Quarter: 2008Q3

REPORT INFORMATION
  Report Type: 
  Country: None (occurrence: None)
  Receive Date: 20080910
  Receipt Date: 20080903
  Transmission Date: 20090109
  Serious: Yes (Hospitalization)
  Sender: FDA-Public Use
  Company Number: US-GILEAD-2008-0018006

PATIENT
  Sex: Female
  Weight: 58.566 kg

DRUGS (11)
  1. LETAIRIS [Suspect]
     Indication: PULMONARY ARTERIAL HYPERTENSION
     Route: 048
     Dates: start: 20070822
  2. FOSAMAX [Concomitant]
  3. CARAFATE [Concomitant]
  4. TUMS [Concomitant]
  5. ASPIRIN [Concomitant]
     Route: 048
  6. CLONIDINE [Concomitant]
  7. NITROSTAT [Concomitant]
  8. CARDIZEM CD [Concomitant]
  9. THEO-DUR [Concomitant]
  10. ALBUTEROL [Concomitant]
  11. NASALCROM SPRAY [Concomitant]

REACTIONS (1)
  - GASTROINTESTINAL HAEMORRHAGE [None]
